FAERS Safety Report 5712093-X (Version None)
Quarter: 2008Q2

REPORT INFORMATION
  Report Type: 
  Country: None (occurrence: None)
  Receive Date: 20080417
  Receipt Date: 20080408
  Transmission Date: 20081010
  Serious: Yes (Hospitalization)
  Sender: FDA-Public Use
  Company Number: 77765

PATIENT
  Age: 6 Year
  Sex: Female
  Weight: 29.9374 kg

DRUGS (1)
  1. DIBROMM PE ELIZIR/PERRIGO [Suspect]
     Dosage: 2 TSP/Q 8 HOURS/ORAL
     Dates: start: 20080329, end: 20080329

REACTIONS (5)
  - FAECAL INCONTINENCE [None]
  - FALL [None]
  - GRAND MAL CONVULSION [None]
  - ILL-DEFINED DISORDER [None]
  - UNRESPONSIVE TO STIMULI [None]
